FAERS Safety Report 5458151-9 (Version None)
Quarter: 2007Q3

REPORT INFORMATION
  Report Type: 
  Country: None (occurrence: None)
  Receive Date: 20070917
  Receipt Date: 20070903
  Transmission Date: 20080115
  Serious: Yes (Other)
  Sender: FDA-Public Use
  Company Number: 100#08#2007-03333

PATIENT
  Age: 17 Year
  Sex: Female

DRUGS (2)
  1. CITALOPRAM HYDROBROMIDE [Suspect]
     Indication: DRUG USE FOR UNKNOWN INDICATION
     Dosage: ORAL
     Route: 048
  2. OXAZEPAM [Concomitant]

REACTIONS (10)
  - AGITATION [None]
  - CARDIOVASCULAR DISORDER [None]
  - COMA [None]
  - LOSS OF CONSCIOUSNESS [None]
  - METABOLIC ACIDOSIS [None]
  - MYDRIASIS [None]
  - NERVOUS SYSTEM DISORDER [None]
  - OVERDOSE [None]
  - PUPILLARY LIGHT REFLEX TESTS ABNORMAL [None]
  - TACHYCARDIA [None]
